FAERS Safety Report 18447332 (Version 1)
Quarter: 2020Q4

REPORT INFORMATION
  Report Type: Spontaneous
  Country: US (occurrence: US)
  Receive Date: 20201030
  Receipt Date: 20201030
  Transmission Date: 20210114
  Serious: No
  Sender: FDA-Public Use
  Company Number: None

PATIENT
  Sex: Female

DRUGS (12)
  1. MORPHINE SUL [Concomitant]
     Active Substance: MORPHINE SULFATE
  2. DILTIAZEM. [Concomitant]
     Active Substance: DILTIAZEM
  3. OARTIA [Concomitant]
  4. PROMACTA [Suspect]
     Active Substance: ELTROMBOPAG OLAMINE
     Indication: PRODUCT USED FOR UNKNOWN INDICATION
     Route: 048
  5. MORPHINE [Concomitant]
     Active Substance: MORPHINE
  6. METFORMIN [Concomitant]
     Active Substance: METFORMIN HYDROCHLORIDE
  7. ONETOUCH DEL MIS [Concomitant]
  8. OMEPRAZOLE. [Concomitant]
     Active Substance: OMEPRAZOLE
  9. HYDRALAZINE [Concomitant]
     Active Substance: HYDRALAZINE HYDROCHLORIDE
  10. JANUVIA [Concomitant]
     Active Substance: SITAGLIPTIN PHOSPHATE
  11. IISINOPRIL [Concomitant]
  12. OXYCODONE [Concomitant]
     Active Substance: OXYCODONE

REACTIONS (2)
  - Vomiting [None]
  - Cholecystitis infective [None]
